FAERS Safety Report 10331574 (Version 1)
Quarter: 2014Q3

REPORT INFORMATION
  Report Type: Spontaneous
  Country: DE (occurrence: DE)
  Receive Date: 20140722
  Receipt Date: 20140722
  Transmission Date: 20150326
  Serious: Yes (Other)
  Sender: FDA-Public Use
  Company Number: DE-FRI-1000069010

PATIENT
  Age: 74 Year
  Sex: Female
  Weight: 68 kg

DRUGS (3)
  1. DONEPEZIL [Concomitant]
     Active Substance: DONEPEZIL
     Indication: DEMENTIA ALZHEIMER^S TYPE
     Dosage: 5 MG
     Dates: start: 201301
  2. MEMANTINE [Suspect]
     Active Substance: MEMANTINE
     Indication: DEMENTIA ALZHEIMER^S TYPE
     Dosage: 20 MG
     Route: 048
     Dates: start: 20131031
  3. MEMANTINE [Suspect]
     Active Substance: MEMANTINE
     Dosage: DOSE REDUCED
     Route: 048

REACTIONS (1)
  - Oral fungal infection [Not Recovered/Not Resolved]

NARRATIVE: CASE EVENT DATE: 20140415
